FAERS Safety Report 10570009 (Version 3)
Quarter: 2015Q1

REPORT INFORMATION
  Report Type: Spontaneous
  Country: US (occurrence: US)
  Receive Date: 20141107
  Receipt Date: 20150126
  Transmission Date: 20150720
  Serious: Yes (Hospitalization, Other)
  Sender: FDA-Public Use
  Company Number: US-BIOGENIDEC-2014BI113019

PATIENT
  Sex: Female

DRUGS (1)
  1. TECFIDERA [Suspect]
     Active Substance: DIMETHYL FUMARATE
     Indication: MULTIPLE SCLEROSIS
     Dates: start: 201307, end: 20141025

REACTIONS (23)
  - Breast cancer [Unknown]
  - Dehydration [Unknown]
  - Muscle atrophy [Recovered/Resolved]
  - Nausea [Not Recovered/Not Resolved]
  - Diarrhoea [Not Recovered/Not Resolved]
  - Cold sweat [Not Recovered/Not Resolved]
  - Hot flush [Unknown]
  - Peripheral coldness [Not Recovered/Not Resolved]
  - Fatigue [Unknown]
  - Loss of consciousness [Recovered/Resolved]
  - Fibromyalgia [Not Recovered/Not Resolved]
  - Burning sensation [Not Recovered/Not Resolved]
  - Hyperhidrosis [Unknown]
  - General symptom [Unknown]
  - Asthenia [Not Recovered/Not Resolved]
  - Feeding disorder [Not Recovered/Not Resolved]
  - Micturition disorder [Unknown]
  - Mobility decreased [Recovered/Resolved]
  - Orthostatic hypotension [Unknown]
  - Gait disturbance [Recovered/Resolved]
  - Dysgeusia [Not Recovered/Not Resolved]
  - Parosmia [Not Recovered/Not Resolved]
  - White blood cell count decreased [Unknown]

NARRATIVE: CASE EVENT DATE: 201312
